FAERS Safety Report 8068278-3 (Version None)
Quarter: 2012Q1

REPORT INFORMATION
  Report Type: 
  Country: None (occurrence: None)
  Receive Date: 20120124
  Receipt Date: 20111006
  Transmission Date: 20120608
  Serious: No
  Sender: FDA-Public Use
  Company Number: US-AMGEN-USASP2011051640

PATIENT
  Age: 89 Year
  Sex: Female

DRUGS (5)
  1. PROLIA [Suspect]
     Indication: OSTEOPOROSIS POSTMENOPAUSAL
     Dosage: 60 MG, Q6MO
     Dates: start: 20110401
  2. VITAMIN B-12 [Concomitant]
  3. NORVASC [Concomitant]
  4. VITAMIN D [Concomitant]
  5. STOOL SOFTENER [Concomitant]

REACTIONS (3)
  - BONE PAIN [None]
  - FATIGUE [None]
  - ARTHRALGIA [None]
